FAERS Safety Report 8741657 (Version 3)
Quarter: 2012Q4

REPORT INFORMATION
  Report Type: 
  Country: NL (occurrence: NL)
  Receive Date: 20120824
  Receipt Date: 20120907
  Transmission Date: 20130627
  Serious: Yes (Other)
  Sender: FDA-Public Use
  Company Number: NL-AMGEN-NLDSP2012053004

PATIENT
  Age: 61 Year
  Sex: Female

DRUGS (5)
  1. ENBREL [Suspect]
     Indication: RHEUMATOID ARTHRITIS
     Dosage: 50 mg, every 2 weeks
     Dates: start: 20090818, end: 2012
  2. MELOXICAM [Suspect]
     Dosage: 7.5 mg, 1x/day
     Dates: start: 2008, end: 20120702
  3. CALCICHEW [Concomitant]
     Dosage: 1000 mg, 1x/day
  4. CALCICHEW [Concomitant]
     Dosage: 1000 mg, 1x/day
     Dates: start: 2008
  5. OMEPRAZOL                          /00661201/ [Concomitant]
     Dosage: 20 mg, 1x/day

REACTIONS (1)
  - Glomerulonephritis [Not Recovered/Not Resolved]
